FAERS Safety Report 25039550 (Version 1)
Quarter: 2025Q1

REPORT INFORMATION
  Report Type: Report from Study
  Country: BR (occurrence: BR)
  Receive Date: 20250305
  Receipt Date: 20250305
  Transmission Date: 20250408
  Serious: Yes (Other)
  Sender: NOVARTIS
  Company Number: BR-002147023-NVSC2025BR025715

PATIENT
  Sex: Male
  Weight: 83 kg

DRUGS (2)
  1. COSENTYX [Suspect]
     Active Substance: SECUKINUMAB
     Indication: Psoriatic arthropathy
     Dosage: 300 MG, QMO
     Route: 065
     Dates: start: 202310
  2. COSENTYX [Suspect]
     Active Substance: SECUKINUMAB
     Route: 065

REACTIONS (5)
  - Back pain [Not Recovered/Not Resolved]
  - Oral candidiasis [Recovering/Resolving]
  - Decreased immune responsiveness [Recovered/Resolved]
  - Oral mucosal erythema [Recovered/Resolved]
  - Ill-defined disorder [Unknown]
